FAERS Safety Report 16368604 (Version 4)
Quarter: 2019Q4

REPORT INFORMATION
  Report Type: Spontaneous
  Country: US (occurrence: US)
  Receive Date: 20190529
  Receipt Date: 20191118
  Transmission Date: 20200122
  Serious: No
  Sender: FDA-Public Use
  Company Number: US-ACTELION-A-NJ2019-191007

PATIENT
  Sex: Female
  Weight: 58.96 kg

DRUGS (3)
  1. UPTRAVI [Suspect]
     Active Substance: SELEXIPAG
     Indication: PULMONARY ARTERIAL HYPERTENSION
     Dosage: 200 MCG, BID
     Route: 048
  2. OPSUMIT [Concomitant]
     Active Substance: MACITENTAN
  3. AMLODIPINE [Concomitant]
     Active Substance: AMLODIPINE BESYLATE

REACTIONS (11)
  - Pain in jaw [Unknown]
  - Arthralgia [Unknown]
  - Nausea [Unknown]
  - Pain in extremity [Unknown]
  - Insomnia [Unknown]
  - Diarrhoea [Unknown]
  - Headache [Unknown]
  - Decreased appetite [Unknown]
  - Adverse event [Unknown]
  - Ear infection [Not Recovered/Not Resolved]
  - Drug intolerance [Unknown]
